FAERS Safety Report 18064919 (Version 2)
Quarter: 2020Q3

REPORT INFORMATION
  Report Type: Spontaneous
  Country: US (occurrence: US)
  Receive Date: 20200724
  Receipt Date: 20200728
  Transmission Date: 20201103
  Serious: No
  Sender: FDA-Public Use
  Company Number: US-TEVA-2020-US-1796617

PATIENT
  Age: 56 Year
  Sex: Female
  Weight: 68.95 kg

DRUGS (4)
  1. NARATRIPTAN [Concomitant]
     Active Substance: NARATRIPTAN HYDROCHLORIDE
     Indication: HEADACHE
     Dosage: HALF OF A PILL
  2. MILK OF MAGNESIA [Concomitant]
     Active Substance: MAGNESIUM HYDROXIDE
     Dosage: BEEN ON IT FOR 15 YEARS
  3. PRILOSEC [Concomitant]
     Active Substance: OMEPRAZOLE MAGNESIUM
  4. AJOVY [Suspect]
     Active Substance: FREMANEZUMAB-VFRM
     Indication: TENSION HEADACHE
     Route: 065
     Dates: start: 201910

REACTIONS (5)
  - Gastritis [Unknown]
  - Fatigue [Unknown]
  - Nausea [Not Recovered/Not Resolved]
  - Gastric disorder [Not Recovered/Not Resolved]
  - Dyspnoea exertional [Unknown]

NARRATIVE: CASE EVENT DATE: 202004
